FAERS Safety Report 23865588 (Version 2)
Quarter: 2024Q2

REPORT INFORMATION
  Report Type: Spontaneous
  Country: JP (occurrence: JP)
  Receive Date: 20240517
  Receipt Date: 20240530
  Transmission Date: 20240716
  Serious: Yes (Life-Threatening, Hospitalization)
  Sender: FDA-Public Use
  Company Number: JP-ABBVIE-5740125

PATIENT
  Age: 80 Year
  Sex: Male

DRUGS (1)
  1. SKYRIZI [Suspect]
     Active Substance: RISANKIZUMAB-RZAA
     Indication: Psoriasis
     Dosage: FORM STRENGTH: 150 MILLIGRAM
     Route: 058
     Dates: start: 20240226

REACTIONS (6)
  - Thyroid hormones decreased [Unknown]
  - Cognitive disorder [Unknown]
  - Oedema peripheral [Recovering/Resolving]
  - Malaise [Unknown]
  - Septic pulmonary embolism [Not Recovered/Not Resolved]
  - Pustular psoriasis [Unknown]

NARRATIVE: CASE EVENT DATE: 20240101
